FAERS Safety Report 6194235-8 (Version None)
Quarter: 2009Q2

REPORT INFORMATION
  Report Type: 
  Country: None (occurrence: None)
  Receive Date: 20090519
  Receipt Date: 20071108
  Transmission Date: 20091009
  Serious: Yes (Hospitalization)
  Sender: FDA-Public Use
  Company Number: US-ASTRAZENECA-2007UW14348

PATIENT
  Age: 14975 Day
  Sex: Female

DRUGS (18)
  1. SEROQUEL [Suspect]
     Indication: SLEEP DISORDER
     Dosage: 200 - 400 MG
     Route: 048
     Dates: start: 20030701, end: 20060401
  2. SEROQUEL [Suspect]
     Dosage: 100-400MG
     Route: 048
     Dates: start: 20050129
  3. EFFEXOR [Concomitant]
     Route: 065
  4. CLONAZEPAM [Concomitant]
     Route: 065
  5. DIOVAN HCT [Concomitant]
     Dosage: 160/25 MG, HALF DAILY
     Route: 065
  6. AVANDAMET [Concomitant]
     Dosage: 4/1000 MG
     Route: 065
  7. TRICOR [Concomitant]
     Dosage: 145
     Route: 065
  8. GLUCOPHAGE [Concomitant]
     Dosage: 500-2000 MG
     Route: 065
  9. PROPOXYPHENE HCL AND ACETAMINOPHEN [Concomitant]
     Dosage: 100/650 MG
     Route: 065
  10. GLUCOTROL [Concomitant]
     Dosage: 5-20 MG
     Route: 065
  11. NAPROXEN [Concomitant]
     Dosage: 500-100 MG
     Route: 065
  12. VICODIN [Concomitant]
     Dosage: 500/5 MG - 1000/10MG
     Route: 065
  13. HYDROCHLOROTHIAZIDE [Concomitant]
     Route: 048
  14. NEXIUM [Concomitant]
     Route: 065
  15. ACTOS [Concomitant]
     Route: 065
  16. GLYBURIDE [Concomitant]
     Dosage: 5-20MG
     Route: 065
  17. REGLAN [Concomitant]
     Dosage: 10-40 MG
     Route: 065
  18. PREVACID [Concomitant]
     Route: 065

REACTIONS (17)
  - ABDOMINAL PAIN LOWER [None]
  - BACK PAIN [None]
  - CHANGE OF BOWEL HABIT [None]
  - COLONIC POLYP [None]
  - CONSTIPATION [None]
  - DIVERTICULUM [None]
  - DIVERTICULUM INTESTINAL [None]
  - GASTRITIS [None]
  - HAEMORRHOIDS [None]
  - IMPAIRED GASTRIC EMPTYING [None]
  - IRRITABLE BOWEL SYNDROME [None]
  - PAIN IN EXTREMITY [None]
  - REFLUX GASTRITIS [None]
  - RENAL COLIC [None]
  - TYPE 2 DIABETES MELLITUS [None]
  - UPPER RESPIRATORY TRACT INFECTION [None]
  - VISION BLURRED [None]
